FAERS Safety Report 9573131 (Version 1)
Quarter: 2013Q4

REPORT INFORMATION
  Report Type: Spontaneous
  Country: US (occurrence: US)
  Receive Date: 20131001
  Receipt Date: 20131001
  Transmission Date: 20140711
  Serious: No
  Sender: FDA-Public Use
  Company Number: US-BIOGENIDEC-2013BI069970

PATIENT
  Age: 39 Year
  Sex: Female

DRUGS (6)
  1. TECFIDERA [Suspect]
     Indication: MULTIPLE SCLEROSIS
     Route: 048
     Dates: start: 20130623
  2. BACLOFEN [Concomitant]
  3. PERCOCET [Concomitant]
  4. VITAMIN D [Concomitant]
  5. VITAMIN B-12 [Concomitant]
  6. XANAX [Concomitant]

REACTIONS (2)
  - Flushing [Unknown]
  - Rash [Unknown]
